FAERS Safety Report 4399816-X (Version None)
Quarter: 2004Q3

REPORT INFORMATION
  Report Type: 
  Country: None (occurrence: None)
  Receive Date: 20040714
  Receipt Date: 20040701
  Transmission Date: 20050211
  Serious: Yes (Death, Life-Threatening, Other)
  Sender: FDA-Public Use
  Company Number: 2004044834

PATIENT
  Age: 48 Year
  Sex: Male
  Weight: 61 kg

DRUGS (8)
  1. FLUCONAZOLE [Suspect]
     Indication: PROPHYLAXIS
     Dosage: 100 MG (100 MG, 1 IN 1 D), ORAL
     Route: 048
     Dates: start: 20040216, end: 20040315
  2. NEFOPAM (NEFOPAM) [Suspect]
     Indication: ILL-DEFINED DISORDER
     Dosage: UNK (6 IN 1 D), INTRAVENOUS
     Route: 042
     Dates: start: 20040319, end: 20040323
  3. ACYCLOVIR [Suspect]
     Indication: PROPHYLAXIS
     Dosage: 1500 MG (500 MG, 3 IN 1 D), INTRAVENOUS
     Route: 042
     Dates: start: 20040317, end: 20040323
  4. PIPERACILLIN/TAZOBACTAM (PIPERACILLIN TAZOBACTAM) [Suspect]
     Indication: PROPHYLAXIS
     Dosage: 12 GRAM (4 GRAM, 3 IN 1 D), INTRAVENOUS
     Route: 042
     Dates: start: 20040304, end: 20040322
  5. OMEPRAZOLE [Suspect]
     Indication: PROPHYLAXIS
     Dosage: 40 MG (40 MG, 1 IN 1 D), INTRAVENOUS
     Route: 042
     Dates: start: 20040309, end: 20040323
  6. LENOGRASTIM (LENOGRASTIM) [Suspect]
     Indication: AGRANULOCYTOSIS
     Dosage: UNK (1 IN 1 D), SUBCUTANEOUS
     Route: 058
     Dates: start: 20040313, end: 20040322
  7. CLINOMEL (AMINO ACIDS NOS, CALCIUM CHLORIDE DIHYDRATE, ELECTROLYTES NO [Concomitant]
  8. ASPARAGINASE (ASPARAGINASE) [Concomitant]

REACTIONS (11)
  - BLOOD URIC ACID INCREASED [None]
  - CENTRAL VENOUS PRESSURE INCREASED [None]
  - CHOLESTASIS [None]
  - CIRCULATORY COLLAPSE [None]
  - DRUG TOXICITY [None]
  - EPSTEIN-BARR VIRUS ANTIBODY POSITIVE [None]
  - HEPATIC STEATOSIS [None]
  - HYPOTHERMIA [None]
  - LIVER TENDERNESS [None]
  - PANCREATITIS ACUTE [None]
  - PELIOSIS HEPATIS [None]
